FAERS Safety Report 21213108 (Version 1)
Quarter: 2022Q3

REPORT INFORMATION
  Report Type: Spontaneous
  Country: US (occurrence: None)
  Receive Date: 20220815
  Receipt Date: 20220815
  Transmission Date: 20221026
  Serious: No
  Sender: FDA-Public Use
  Company Number: None

PATIENT
  Age: 45 Year
  Sex: Female
  Weight: 99 kg

DRUGS (6)
  1. DEXTROAMPHET SACCHARAT, AMPHET ASPARTATE, DEXTROAMPHET SULFATE AND AMP [Suspect]
     Active Substance: AMPHETAMINE ASPARTATE\AMPHETAMINE SULFATE\DEXTROAMPHETAMINE SACCHARATE\DEXTROAMPHETAMINE SULFATE
     Indication: Attention deficit hyperactivity disorder
     Dosage: OTHER QUANTITY : 2 CAPSULE(S);?FREQUENCY : TWICE A DAY;?
     Route: 048
     Dates: start: 20220327, end: 20220713
  2. Adderall XR/ER 20 MG [Concomitant]
  3. Dextroamp-20 mg Cap [Concomitant]
  4. Dextroamp-Ampheramin 20 mg tab 1/day [Concomitant]
  5. 10mg Zolpidem Tartrate [Concomitant]
  6. BUPROPION [Concomitant]
     Active Substance: BUPROPION

REACTIONS (4)
  - Dysgeusia [None]
  - Vomiting [None]
  - Allergic reaction to excipient [None]
  - Therapy cessation [None]

NARRATIVE: CASE EVENT DATE: 20220327
